FAERS Safety Report 7710017-7 (Version None)
Quarter: 2011Q3

REPORT INFORMATION
  Report Type: 
  Country: None (occurrence: None)
  Receive Date: 20110825
  Receipt Date: 20110815
  Transmission Date: 20111222
  Serious: Yes (Hospitalization, Other)
  Sender: FDA-Public Use
  Company Number: PHHY2010DE37627

PATIENT
  Sex: Male
  Weight: 65 kg

DRUGS (8)
  1. EFEROX [Concomitant]
     Indication: HYPOTHYROIDISM
     Dosage: 125 UG
  2. AFINITOR [Suspect]
     Dosage: 5 MG, DAILY
     Route: 048
     Dates: start: 20100906, end: 20110530
  3. TORSEMIDE [Concomitant]
     Indication: OEDEMA
     Dosage: 10 MG
  4. SIMAVASTATIN [Concomitant]
     Dosage: 20 MG
  5. ACETYLSALICYLIC ACID SRT [Concomitant]
     Dosage: 100 MG
  6. AFINITOR [Suspect]
     Dosage: 10 MG, DAILY
     Route: 048
     Dates: start: 20100714, end: 20100905
  7. RAMIPRIL [Concomitant]
     Indication: HYPERTENSION
     Dosage: 12.5 MG,2.5 MG
  8. AFINITOR [Suspect]
     Indication: RENAL CELL CARCINOMA
     Dosage: 10 MG, DAILY
     Route: 048
     Dates: start: 20100209, end: 20100502

REACTIONS (8)
  - PNEUMONITIS [None]
  - ROTATOR CUFF SYNDROME [None]
  - NAUSEA [None]
  - DYSPNOEA [None]
  - OEDEMA PERIPHERAL [None]
  - ANGINA PECTORIS [None]
  - COUGH [None]
  - INJURY [None]
